FAERS Safety Report 14407514 (Version 1)
Quarter: 2018Q1

REPORT INFORMATION
  Report Type: Spontaneous
  Country: US (occurrence: US)
  Receive Date: 20180116
  Receipt Date: 20180116
  Transmission Date: 20180509
  Serious: Yes (Other)
  Sender: FDA-Public Use
  Company Number: None

PATIENT
  Age: 13 Year
  Weight: 47.25 kg

DRUGS (3)
  1. ZINC. [Concomitant]
     Active Substance: ZINC
  2. OSELTAMIVIR PHOSPHATE. [Suspect]
     Active Substance: OSELTAMIVIR PHOSPHATE
     Indication: INFLUENZA
     Dosage: ?          QUANTITY:10 CAPSULE(S);?
     Route: 048
     Dates: start: 20180109, end: 20180112
  3. VITAMIN D [Concomitant]
     Active Substance: CHOLECALCIFEROL

REACTIONS (4)
  - Nausea [None]
  - Eye pain [None]
  - Diarrhoea [None]
  - Psychotic disorder [None]

NARRATIVE: CASE EVENT DATE: 20180111
